FAERS Safety Report 20544150 (Version 1)
Quarter: 2022Q1

REPORT INFORMATION
  Report Type: Spontaneous
  Country: IN (occurrence: IN)
  Receive Date: 20220303
  Receipt Date: 20220303
  Transmission Date: 20220423
  Serious: Yes (Death, Other)
  Sender: FDA-Public Use
  Company Number: IN-PRA-001161

PATIENT
  Age: 9 Year
  Sex: Male

DRUGS (3)
  1. METHYLPREDNISOLONE [Suspect]
     Active Substance: METHYLPREDNISOLONE
     Indication: Dengue haemorrhagic fever
     Dosage: 1 GM IN 500 ML SALINE
     Route: 042
  2. DORZOLAMIDE [Suspect]
     Active Substance: DORZOLAMIDE
     Indication: Dengue haemorrhagic fever
     Route: 061
  3. TIMOLOL [Suspect]
     Active Substance: TIMOLOL
     Indication: Dengue haemorrhagic fever
     Route: 061

REACTIONS (5)
  - Drug ineffective [Fatal]
  - Disease progression [Unknown]
  - Product use in unapproved indication [Unknown]
  - Open globe injury [Unknown]
  - Dengue haemorrhagic fever [Unknown]
